FAERS Safety Report 16424023 (Version 2)
Quarter: 2019Q2

REPORT INFORMATION
  Report Type: Spontaneous
  Country: US (occurrence: US)
  Receive Date: 20190613
  Receipt Date: 20190621
  Transmission Date: 20190711
  Serious: No
  Sender: FDA-Public Use
  Company Number: US-AMGEN-USASP2019092189

PATIENT
  Age: 70 Year
  Sex: Female
  Weight: 82.54 kg

DRUGS (4)
  1. NEULASTA [Suspect]
     Active Substance: PEGFILGRASTIM
     Indication: PRODUCT USED FOR UNKNOWN INDICATION
     Dosage: 6 MILLIGRAM
     Route: 065
  2. AVASTIN [ATORVASTATIN CALCIUM] [Concomitant]
     Active Substance: ATORVASTATIN CALCIUM
     Indication: LUNG NEOPLASM MALIGNANT
     Dosage: 15 MILLIGRAM/KILOGRAM
     Route: 065
  3. PEMETREXED. [Concomitant]
     Active Substance: PEMETREXED
     Indication: LUNG NEOPLASM MALIGNANT
     Dosage: 500 MILLIGRAM/SQ. METER
     Route: 065
  4. CARBOPLATIN. [Concomitant]
     Active Substance: CARBOPLATIN
     Indication: LUNG NEOPLASM MALIGNANT
     Dosage: UNK, (AUC 6)
     Route: 065

REACTIONS (1)
  - Unintentional medical device removal [Unknown]

NARRATIVE: CASE EVENT DATE: 20190606
